FAERS Safety Report 22624792 (Version 1)
Quarter: 2023Q2

REPORT INFORMATION
  Report Type: Spontaneous
  Country: US (occurrence: US)
  Receive Date: 20230621
  Receipt Date: 20230621
  Transmission Date: 20230721
  Serious: No
  Sender: FDA-Public Use
  Company Number: US-ABBVIE-5298713

PATIENT
  Age: 72 Year
  Weight: 56.245 kg

DRUGS (1)
  1. LATISSE [Suspect]
     Active Substance: BIMATOPROST
     Indication: Eyelid disorder
     Dosage: FORM STRENGTH: 5 MILLILITER, START DATE TEXT: AT LEAST 6-7 YEARS
     Route: 047
     Dates: end: 20230616

REACTIONS (7)
  - Eye irritation [Not Recovered/Not Resolved]
  - Purulence [Recovered/Resolved]
  - Erythema of eyelid [Not Recovered/Not Resolved]
  - Ocular hyperaemia [Not Recovered/Not Resolved]
  - Eyelid margin crusting [Recovered/Resolved]
  - Pruritus [Not Recovered/Not Resolved]
  - Product packaging issue [Unknown]

NARRATIVE: CASE EVENT DATE: 20230616
